FAERS Safety Report 8311721-2 (Version None)
Quarter: 2012Q1

REPORT INFORMATION
  Report Type: 
  Country: None (occurrence: None)
  Receive Date: 20120315
  Receipt Date: 20110615
  Transmission Date: 20120608
  Serious: No
  Sender: FDA-Public Use
  Company Number: PHHY2011US45817

PATIENT
  Age: 60 Year
  Sex: Male

DRUGS (12)
  1. ACCOLATE [Concomitant]
  2. GILENYA [Suspect]
     Indication: MULTIPLE SCLEROSIS
     Dosage: 0.5 MG, QD
     Dates: start: 20110303, end: 20110610
  3. VALTREX [Concomitant]
  4. VITAMIN D [Concomitant]
  5. METFORMIN HCL [Concomitant]
  6. VIAGRA [Concomitant]
  7. AMPYRA [Suspect]
     Dosage: 10 MG, BID
  8. ACETAMINOPHEN [Concomitant]
  9. NOVOLOG [Concomitant]
  10. NEXIUM (ESOMPRAZOLE MAGNESIUM) [Concomitant]
  11. ZYRTEC [Concomitant]
  12. VITAMIN B12 [Concomitant]

REACTIONS (3)
  - NAUSEA [None]
  - FATIGUE [None]
  - PAIN [None]
